FAERS Safety Report 10420277 (Version 2)
Quarter: 2014Q3

REPORT INFORMATION
  Report Type: Spontaneous
  Country: US (occurrence: None)
  Receive Date: 20140701
  Receipt Date: 20140926
  Transmission Date: 20150326
  Serious: No
  Sender: FDA-Public Use
  Company Number: 1000066725

PATIENT
  Age: 85 Year
  Sex: Male

DRUGS (6)
  1. MILK OF MAGNESIA (MAGNESIUM HYDROXIDE) [Concomitant]
  2. MIRALAX (POLYETHYLENE GLYCOL) [Concomitant]
  3. INJECTION [Suspect]
     Active Substance: UNSPECIFIED INGREDIENT
     Indication: BURSITIS
     Dates: start: 20140722, end: 20140723
  4. LINZESS [Suspect]
     Active Substance: LINACLOTIDE
     Indication: CONSTIPATION
     Dosage: AS NEEDED
     Route: 048
     Dates: start: 20130922
  5. METAMUCIL (PSYLLIUM) [Concomitant]
  6. DULCOLAX (BISACODYL) [Concomitant]
     Active Substance: BISACODYL

REACTIONS (3)
  - Drug ineffective [None]
  - Bursitis [None]
  - Rash [None]

NARRATIVE: CASE EVENT DATE: 2013
